FAERS Safety Report 26114720 (Version 1)
Quarter: 2025Q4

REPORT INFORMATION
  Report Type: Spontaneous
  Country: US (occurrence: US)
  Receive Date: 20251202
  Receipt Date: 20251202
  Transmission Date: 20260118
  Serious: No
  Sender: TEVA
  Company Number: US-TEVA-VS-3394112

PATIENT
  Age: 81 Year
  Sex: Female

DRUGS (1)
  1. TRAZODONE HYDROCHLORIDE [Suspect]
     Active Substance: TRAZODONE HYDROCHLORIDE
     Indication: Product used for unknown indication
     Dosage: CUTS THE TABLETS IN HALF
     Route: 048

REACTIONS (1)
  - Night sweats [Unknown]
